FAERS Safety Report 24846024 (Version 2)
Quarter: 2025Q1

REPORT INFORMATION
  Report Type: Spontaneous
  Country: IT (occurrence: IT)
  Receive Date: 20250115
  Receipt Date: 20250121
  Transmission Date: 20250409
  Serious: Yes (Other)
  Sender: SANOFI AVENTIS
  Company Number: IT-DialogSolutions-SAAVPROD-PI730153-C1

PATIENT
  Age: 50 Year
  Sex: Female

DRUGS (21)
  1. DOCETAXEL [Suspect]
     Active Substance: DOCETAXEL
     Indication: Metastases to bone
     Dates: start: 201501, end: 201902
  2. DOCETAXEL [Suspect]
     Active Substance: DOCETAXEL
     Indication: Bone lesion
  3. DOCETAXEL [Suspect]
     Active Substance: DOCETAXEL
     Indication: Hormone receptor positive HER2 negative breast cancer
  4. DOCETAXEL [Suspect]
     Active Substance: DOCETAXEL
     Indication: Breast cancer metastatic
  5. EVEROLIMUS [Suspect]
     Active Substance: EVEROLIMUS
     Indication: Metastases to bone
     Dates: start: 201501, end: 201902
  6. EVEROLIMUS [Suspect]
     Active Substance: EVEROLIMUS
     Indication: Bone lesion
  7. EVEROLIMUS [Suspect]
     Active Substance: EVEROLIMUS
     Indication: Hormone receptor positive HER2 negative breast cancer
  8. EVEROLIMUS [Suspect]
     Active Substance: EVEROLIMUS
     Indication: Breast cancer metastatic
  9. EXEMESTANE [Suspect]
     Active Substance: EXEMESTANE
     Indication: Metastases to bone
     Dates: start: 201501, end: 201902
  10. EXEMESTANE [Suspect]
     Active Substance: EXEMESTANE
     Indication: Bone lesion
  11. EXEMESTANE [Suspect]
     Active Substance: EXEMESTANE
     Indication: Hormone receptor positive HER2 negative breast cancer
  12. EXEMESTANE [Suspect]
     Active Substance: EXEMESTANE
     Indication: Breast cancer metastatic
  13. GEMCITABINE [Suspect]
     Active Substance: GEMCITABINE
     Indication: Metastases to bone
     Dates: start: 201501, end: 201902
  14. GEMCITABINE [Suspect]
     Active Substance: GEMCITABINE
     Indication: Bone lesion
  15. GEMCITABINE [Suspect]
     Active Substance: GEMCITABINE
     Indication: Hormone receptor positive HER2 negative breast cancer
  16. GEMCITABINE [Suspect]
     Active Substance: GEMCITABINE
     Indication: Breast cancer metastatic
  17. VINORELBINE [Suspect]
     Active Substance: VINORELBINE TARTRATE
     Indication: Metastases to bone
     Dates: start: 201501, end: 201902
  18. VINORELBINE [Suspect]
     Active Substance: VINORELBINE TARTRATE
     Indication: Bone lesion
  19. VINORELBINE [Suspect]
     Active Substance: VINORELBINE TARTRATE
     Indication: Hormone receptor positive HER2 negative breast cancer
  20. VINORELBINE [Suspect]
     Active Substance: VINORELBINE TARTRATE
     Indication: Breast cancer metastatic
  21. LETROZOLE [Concomitant]
     Active Substance: LETROZOLE

REACTIONS (4)
  - Leukopenia [Unknown]
  - Hypertransaminasaemia [Unknown]
  - Fatigue [Unknown]
  - Nausea [Unknown]
